FAERS Safety Report 6084672-4 (Version None)
Quarter: 2009Q1

REPORT INFORMATION
  Report Type: 
  Country: None (occurrence: None)
  Receive Date: 20090217
  Receipt Date: 20090210
  Transmission Date: 20090719
  Serious: Yes (Life-Threatening, Hospitalization, Other)
  Sender: FDA-Public Use
  Company Number: THQ2009A00673

PATIENT
  Sex: Female

DRUGS (6)
  1. LANSOPRAZOLE [Suspect]
     Indication: ABDOMINAL PAIN
     Dosage: 30 MG (30 MG, 1 IN 1 D) PER ORAL
     Route: 048
     Dates: start: 20081117, end: 20081124
  2. LANSOPRAZOLE [Suspect]
     Indication: HELICOBACTER INFECTION
     Dosage: 30 MG (30 MG, 1 IN 1 D) PER ORAL
     Route: 048
     Dates: start: 20081117, end: 20081124
  3. AMOXICILLIN [Suspect]
     Indication: HELICOBACTER INFECTION
     Dosage: 1000 MG (500 MG, 2 IN 1 D) PER ORAL
     Route: 048
     Dates: start: 20081021, end: 20081124
  4. HYOSCINE HBR HYT [Concomitant]
  5. CO-CODAMOL (PANADEINE CO) [Concomitant]
  6. LEVOTHYROXINE SODIUM [Concomitant]

REACTIONS (5)
  - ACUTE HEPATIC FAILURE [None]
  - COAGULOPATHY [None]
  - ENCEPHALOPATHY [None]
  - GASTRIC VARICES HAEMORRHAGE [None]
  - RENAL IMPAIRMENT [None]
